FAERS Safety Report 8473426-7 (Version None)
Quarter: 2012Q2

REPORT INFORMATION
  Report Type: 
  Country: None (occurrence: None)
  Receive Date: 20120628
  Receipt Date: 20120613
  Transmission Date: 20120825
  Serious: Yes (Hospitalization)
  Sender: FDA-Public Use
  Company Number: SE-AMGEN-SWESP2012038113

PATIENT
  Age: 73 Year
  Sex: Male

DRUGS (5)
  1. RISEDRONATE SODIUM [Concomitant]
     Dosage: UNK
  2. ENBREL [Suspect]
     Indication: RHEUMATOID ARTHRITIS
     Dosage: 50 MG, WEEKLY
     Route: 058
     Dates: start: 20101103, end: 20110627
  3. METHOTREXATE SODIUM [Concomitant]
     Dosage: 10 MG/ML, PRE-FILLED SYRING
  4. PREDNISOLONE [Concomitant]
     Dosage: UNK
  5. METHOTREXATE SODIUM [Concomitant]
     Dosage: 10 MG/ML, UNK

REACTIONS (1)
  - PLEURISY [None]
